FAERS Safety Report 16916808 (Version 1)
Quarter: 2019Q4

REPORT INFORMATION
  Report Type: Spontaneous
  Country: FR (occurrence: FR)
  Receive Date: 20191015
  Receipt Date: 20191015
  Transmission Date: 20200122
  Serious: Yes (Congenital Anomaly)
  Sender: FDA-Public Use
  Company Number: FR-US-PROVELL PHARMACEUTICALS LLC-E2B_90071263

PATIENT
  Age: 2 Month
  Sex: Female

DRUGS (2)
  1. LAMICTAL [Suspect]
     Active Substance: LAMOTRIGINE
     Indication: BIPOLAR DISORDER
     Route: 064
     Dates: start: 20160910, end: 20170325
  2. LEVOTHYROX [Suspect]
     Active Substance: LEVOTHYROXINE
     Indication: HYPOTHYROIDISM
     Route: 064

REACTIONS (7)
  - Gastrooesophageal reflux disease [Recovered/Resolved]
  - Gross motor delay [Not Recovered/Not Resolved]
  - Talipes [Recovering/Resolving]
  - Speech disorder developmental [Not Recovered/Not Resolved]
  - Strabismus [Not Recovered/Not Resolved]
  - Developmental delay [Not Recovered/Not Resolved]
  - Microcephaly [Not Recovered/Not Resolved]

NARRATIVE: CASE EVENT DATE: 201706
